FAERS Safety Report 8194372-2 (Version None)
Quarter: 2012Q1

REPORT INFORMATION
  Report Type: 
  Country: None (occurrence: None)
  Receive Date: 20120308
  Receipt Date: 20120302
  Transmission Date: 20120608
  Serious: Yes (Other)
  Sender: FDA-Public Use
  Company Number: US-ABBOTT-12P-163-0911444-00

PATIENT
  Age: 35 Year
  Sex: Male

DRUGS (4)
  1. IMURAN [Concomitant]
     Indication: COLITIS
  2. PREVACID [Concomitant]
     Indication: DYSPEPSIA
  3. HUMIRA [Suspect]
     Indication: COLITIS ULCERATIVE
     Dates: start: 20110301
  4. TRICOR [Concomitant]
     Indication: BLOOD TRIGLYCERIDES INCREASED

REACTIONS (4)
  - INJECTION SITE PAIN [None]
  - CARDIAC ABLATION [None]
  - BLOOD TRIGLYCERIDES INCREASED [None]
  - HEART RATE IRREGULAR [None]
